FAERS Safety Report 7134459-6 (Version None)
Quarter: 2010Q4

REPORT INFORMATION
  Report Type: 
  Country: None (occurrence: None)
  Receive Date: 20101130
  Receipt Date: 20101130
  Transmission Date: 20110411
  Serious: Yes (Hospitalization)
  Sender: FDA-Public Use
  Company Number: None

PATIENT
  Age: 72 Year
  Sex: Male
  Weight: 75 kg

DRUGS (3)
  1. WARFARIN SODIUM [Suspect]
     Indication: EJECTION FRACTION DECREASED
     Dates: end: 20101127
  2. AMOXICILLIN [Suspect]
  3. MAGNESIUM [Suspect]

REACTIONS (7)
  - DIARRHOEA [None]
  - DIZZINESS [None]
  - HAEMATOCRIT INCREASED [None]
  - HAEMOGLOBIN DECREASED [None]
  - HYPOTENSION [None]
  - INTERNATIONAL NORMALISED RATIO INCREASED [None]
  - URINARY TRACT INFECTION [None]
